FAERS Safety Report 9928205 (Version 2)
Quarter: 2014Q1

REPORT INFORMATION
  Report Type: Spontaneous
  Country: US (occurrence: US)
  Receive Date: 20140227
  Receipt Date: 20140312
  Transmission Date: 20141002
  Serious: Yes (Hospitalization, Other)
  Sender: FDA-Public Use
  Company Number: US-JNJFOC-20140213792

PATIENT
  Sex: Female
  Weight: 85.28 kg

DRUGS (4)
  1. NUCYNTA [Suspect]
     Indication: PAIN
     Route: 048
  2. ACTIQ [Suspect]
     Indication: PAIN
     Route: 065
     Dates: start: 2004, end: 2013
  3. VALIUM [Concomitant]
     Route: 065
  4. LEVOTHYROXINE [Concomitant]
     Route: 065

REACTIONS (12)
  - Hospitalisation [Unknown]
  - Migraine [Not Recovered/Not Resolved]
  - Cellulitis [Not Recovered/Not Resolved]
  - Suicidal ideation [Not Recovered/Not Resolved]
  - Screaming [Not Recovered/Not Resolved]
  - Crying [Not Recovered/Not Resolved]
  - Weight decreased [Not Recovered/Not Resolved]
  - General physical health deterioration [Not Recovered/Not Resolved]
  - Skin ulcer [Unknown]
  - Nausea [Unknown]
  - Vomiting [Unknown]
  - Drug ineffective [Unknown]
